FAERS Safety Report 6440196-3 (Version None)
Quarter: 2009Q4

REPORT INFORMATION
  Report Type: 
  Country: None (occurrence: None)
  Receive Date: 20091113
  Receipt Date: 20090811
  Transmission Date: 20100525
  Serious: No
  Sender: FDA-Public Use
  Company Number: A0802677A

PATIENT
  Age: 82 Year
  Sex: Female

DRUGS (2)
  1. CARVEDILOL [Suspect]
     Indication: CARDIAC FAILURE
     Route: 065
  2. LISINOPRIL [Suspect]
     Indication: CARDIAC FAILURE
     Route: 065

REACTIONS (2)
  - AZOTAEMIA [None]
  - BLOOD CREATININE INCREASED [None]
